FAERS Safety Report 8198764-7 (Version None)
Quarter: 2012Q1

REPORT INFORMATION
  Report Type: 
  Country: None (occurrence: None)
  Receive Date: 20120309
  Receipt Date: 20120209
  Transmission Date: 20120608
  Serious: No
  Sender: FDA-Public Use
  Company Number: US-AMGEN-USASP2012007020

PATIENT
  Age: 60 Year
  Sex: Female
  Weight: 60.771 kg

DRUGS (2)
  1. CELEBREX [Concomitant]
  2. PROLIA [Suspect]
     Indication: OSTEOPOROSIS POSTMENOPAUSAL
     Dosage: 60 MG, Q6MO
     Route: 058
     Dates: start: 20110725

REACTIONS (4)
  - BLOOD UREA NITROGEN/CREATININE RATIO INCREASED [None]
  - BACK PAIN [None]
  - ARTHRALGIA [None]
  - MYALGIA [None]
